FAERS Safety Report 8621696-4 (Version None)
Quarter: 2012Q3

REPORT INFORMATION
  Report Type: 
  Country: None (occurrence: None)
  Receive Date: 20120821
  Receipt Date: 20120821
  Transmission Date: 20120928
  Serious: Yes (Other)
  Sender: FDA-Public Use
  Company Number: None

PATIENT
  Age: 34 Year
  Sex: Female
  Weight: 81.6475 kg

DRUGS (1)
  1. MIRENA [Suspect]
     Indication: CONTRACEPTION
     Dosage: 20 MCG, PER DAY, INTRA-UTERINE
     Route: 015
     Dates: start: 20100706, end: 20120822

REACTIONS (6)
  - BACTERIAL INFECTION [None]
  - PRODUCT QUALITY ISSUE [None]
  - INSOMNIA [None]
  - DEPRESSION [None]
  - ALOPECIA [None]
  - UNEVALUABLE EVENT [None]
